FAERS Safety Report 5013618-2 (Version None)
Quarter: 2006Q2

REPORT INFORMATION
  Report Type: 
  Country: None (occurrence: None)
  Receive Date: 20060530
  Receipt Date: 20041203
  Transmission Date: 20061013
  Serious: Yes (Other)
  Sender: FDA-Public Use
  Company Number: GB-GLAXOSMITHKLINE-B0361630A

PATIENT
  Sex: Female

DRUGS (2)
  1. PAROXETINE HYDROCHLORIDE [Suspect]
     Route: 065
     Dates: start: 19961201
  2. PAROXETINE [Suspect]

REACTIONS (7)
  - ABORTION MISSED [None]
  - DIARRHOEA [None]
  - DIZZINESS [None]
  - DRUG WITHDRAWAL SYNDROME [None]
  - INSOMNIA [None]
  - PALPITATIONS [None]
  - WEIGHT DECREASED [None]
